FAERS Safety Report 8984182 (Version 2)
Quarter: 2013Q1

REPORT INFORMATION
  Report Type: Spontaneous
  Country: DE (occurrence: None)
  Receive Date: 20121214
  Receipt Date: 20130108
  Transmission Date: 20140127
  Serious: Yes (Hospitalization)
  Sender: FDA-Public Use
  Company Number: 2010EU000200

PATIENT
  Age: 6 Year
  Sex: Male
  Weight: 23 kg

DRUGS (1)
  1. FK506 [Suspect]
     Indication: DERMATITIS ATOPIC
     Dates: start: 20070801, end: 20090410

REACTIONS (4)
  - Pneumonia [None]
  - Asthma [None]
  - Infection [None]
  - General physical health deterioration [None]
